FAERS Safety Report 26099878 (Version 1)
Quarter: 2025Q4

REPORT INFORMATION
  Report Type: Spontaneous
  Country: IL (occurrence: IL)
  Receive Date: 20251128
  Receipt Date: 20251128
  Transmission Date: 20260117
  Serious: No
  Sender: ALKEM
  Company Number: IL-ALKEM LABORATORIES LIMITED-IL-ALKEM-2025-06114

PATIENT
  Age: 22 Year
  Sex: Male

DRUGS (16)
  1. OLANZAPINE [Suspect]
     Active Substance: OLANZAPINE
     Indication: Depression
     Dosage: 5 MILLIGRAM, QD
     Route: 065
  2. OLANZAPINE [Suspect]
     Active Substance: OLANZAPINE
     Indication: Obsessive thoughts
     Dosage: 20 MILLIGRAM, QD
     Route: 065
  3. OLANZAPINE [Suspect]
     Active Substance: OLANZAPINE
     Indication: Obsessive-compulsive disorder
  4. OLANZAPINE [Suspect]
     Active Substance: OLANZAPINE
     Indication: Schizophreniform disorder
  5. OLANZAPINE [Suspect]
     Active Substance: OLANZAPINE
     Indication: Delusion of replacement
  6. CLOZAPINE [Suspect]
     Active Substance: CLOZAPINE
     Indication: Schizophreniform disorder
     Dosage: UNK, QD (TITRATED UP TO 400 MILLIGRAM/DAY)
     Route: 065
  7. CLOZAPINE [Suspect]
     Active Substance: CLOZAPINE
     Indication: Delusion of replacement
  8. FLUPHENAZINE DECANOATE [Suspect]
     Active Substance: FLUPHENAZINE DECANOATE
     Indication: Schizophreniform disorder
     Dosage: 50 MILLIGRAM, BIWEEKLY
     Route: 030
  9. FLUPHENAZINE DECANOATE [Suspect]
     Active Substance: FLUPHENAZINE DECANOATE
     Indication: Delusion of replacement
  10. SERTRALINE [Suspect]
     Active Substance: SERTRALINE HYDROCHLORIDE
     Indication: Depression
     Dosage: 50 MILLIGRAM, QD
     Route: 065
  11. SERTRALINE [Suspect]
     Active Substance: SERTRALINE HYDROCHLORIDE
     Indication: Obsessive thoughts
  12. SERTRALINE [Suspect]
     Active Substance: SERTRALINE HYDROCHLORIDE
     Indication: Obsessive-compulsive disorder
  13. CLONAZEPAM [Concomitant]
     Active Substance: CLONAZEPAM
     Indication: Schizophreniform disorder
     Dosage: 3 MILLIGRAM, QD
     Route: 065
  14. CLONAZEPAM [Concomitant]
     Active Substance: CLONAZEPAM
     Indication: Delusion of replacement
  15. RISPERIDONE [Concomitant]
     Active Substance: RISPERIDONE
     Indication: Schizophreniform disorder
     Dosage: 2 MILLIGRAM, QD
     Route: 065
  16. RISPERIDONE [Concomitant]
     Active Substance: RISPERIDONE
     Indication: Delusion of replacement

REACTIONS (2)
  - Therapy partial responder [Unknown]
  - Therapy non-responder [Unknown]
